FAERS Safety Report 13613120 (Version 1)
Quarter: 2017Q2

REPORT INFORMATION
  Report Type: Spontaneous
  Country: US (occurrence: US)
  Receive Date: 20170605
  Receipt Date: 20170605
  Transmission Date: 20170830
  Serious: Yes (Other)
  Sender: FDA-Public Use
  Company Number: US-CELGENEUS-USA-20170600174

PATIENT
  Age: 68 Year
  Sex: Female

DRUGS (13)
  1. ANASTROZOLE. [Concomitant]
     Active Substance: ANASTROZOLE
     Indication: BREAST CANCER
     Route: 065
     Dates: start: 201703
  2. NORTRIPTYLINE CALCIUM [Concomitant]
     Indication: INSOMNIA
  3. GABA AMINO ACIDS [Concomitant]
     Indication: SUPPLEMENTATION THERAPY
     Route: 065
  4. NORTRIPTYLINE CALCIUM [Concomitant]
     Indication: HEADACHE
     Dosage: 25 MILLIGRAM
     Route: 065
     Dates: start: 201512
  5. NORTRIPTYLINE CALCIUM [Concomitant]
     Indication: SUPPLEMENTATION THERAPY
  6. TRIAMCINOLONE [Concomitant]
     Active Substance: TRIAMCINOLONE
     Indication: SUPPLEMENTATION THERAPY
     Route: 065
  7. OTEZLA [Suspect]
     Active Substance: APREMILAST
     Indication: PSORIASIS
     Dosage: 60 MILLIGRAM
     Route: 048
     Dates: start: 20170201
  8. GABAPENTIN. [Concomitant]
     Active Substance: GABAPENTIN
     Indication: NEUROPATHY PERIPHERAL
     Dosage: 300 MILLIGRAM
     Route: 065
     Dates: start: 201703
  9. ALTRYPTOPHAN [Concomitant]
     Indication: SUPPLEMENTATION THERAPY
     Route: 065
  10. HYDROXYZINE [Concomitant]
     Active Substance: HYDROXYZINE HYDROCHLORIDE
     Indication: PRURITUS
     Dosage: 50 MILLIGRAM
     Route: 065
  11. ENDOGARD [Concomitant]
     Indication: SUPPLEMENTATION THERAPY
     Route: 065
  12. MULTIVITAMINS [Concomitant]
     Active Substance: VITAMINS
     Indication: SUPPLEMENTATION THERAPY
     Route: 065
  13. OMEGA 3 [Concomitant]
     Active Substance: OMEGA-3 FATTY ACIDS
     Indication: SUPPLEMENTATION THERAPY
     Route: 065

REACTIONS (1)
  - Abdominal pain upper [Recovered/Resolved]

NARRATIVE: CASE EVENT DATE: 20170207
